FAERS Safety Report 9759738 (Version 1)
Quarter: 2013Q4

REPORT INFORMATION
  Report Type: Spontaneous
  Country: US (occurrence: US)
  Receive Date: 20131216
  Receipt Date: 20131216
  Transmission Date: 20140711
  Serious: No
  Sender: FDA-Public Use
  Company Number: US-GILEAD-2010-0029080

PATIENT
  Age: 57 Year
  Sex: Female

DRUGS (10)
  1. LETAIRIS [Suspect]
     Indication: PULMONARY ARTERIAL HYPERTENSION
     Route: 048
     Dates: start: 20091208
  2. LASIX [Concomitant]
  3. TYLENOL [Concomitant]
  4. REVATIO [Concomitant]
  5. LIPITOR [Concomitant]
  6. CLONAZEPAM [Concomitant]
  7. LISINOPRIL [Concomitant]
  8. POTASSIUM CHLORIDE [Concomitant]
  9. ZANAFLEX [Concomitant]
  10. HYDROCODONE W/APAP [Concomitant]

REACTIONS (1)
  - Heart rate increased [Unknown]
